FAERS Safety Report 4815778-2 (Version None)
Quarter: 2005Q4

REPORT INFORMATION
  Report Type: 
  Country: None (occurrence: None)
  Receive Date: 20051026
  Receipt Date: 20051010
  Transmission Date: 20060501
  Serious: Yes (Other)
  Sender: FDA-Public Use
  Company Number: USA0510110977

PATIENT
  Age: 14 Year
  Sex: Female

DRUGS (7)
  1. STRATTERA [Suspect]
     Dosage: 60 MG IN THE MORNING
     Dates: end: 20050501
  2. ACETYLSALICYLIC ACID SRT [Concomitant]
  3. KEFLEX   /00145501/(CEFALEXIN) [Concomitant]
  4. AUGMENTI   /SCH/ [Concomitant]
  5. ZOLOFT [Concomitant]
  6. VASOTEC [Concomitant]
  7. DIGOXIN [Concomitant]

REACTIONS (5)
  - COAGULATION TIME PROLONGED [None]
  - HEPATOMEGALY [None]
  - INGROWING NAIL [None]
  - PETECHIAE [None]
  - PLATELET COUNT DECREASED [None]
